FAERS Safety Report 7249805-2 (Version None)
Quarter: 2011Q1

REPORT INFORMATION
  Report Type: 
  Country: None (occurrence: None)
  Receive Date: 20110128
  Receipt Date: 20100420
  Transmission Date: 20110831
  Serious: No
  Sender: FDA-Public Use
  Company Number: A0855356A

PATIENT
  Sex: Female

DRUGS (1)
  1. WELLBUTRIN [Suspect]
     Route: 065

REACTIONS (5)
  - ANGER [None]
  - AGITATION [None]
  - ADVERSE EVENT [None]
  - ABDOMINAL PAIN [None]
  - CONSTIPATION [None]
